FAERS Safety Report 6560671-0 (Version None)
Quarter: 2010Q1

REPORT INFORMATION
  Report Type: 
  Country: None (occurrence: None)
  Receive Date: 20100129
  Receipt Date: 20050317
  Transmission Date: 20100710
  Serious: No
  Sender: FDA-Public Use
  Company Number: US-ALLERGAN-200502432

PATIENT
  Sex: Female

DRUGS (2)
  1. BOTOX COSMETIC [Suspect]
     Indication: SKIN WRINKLING
     Dosage: 30UNITS, SINGLE
     Route: 030
     Dates: start: 20050210, end: 20050210
  2. BOTOX COSMETIC [Suspect]
     Dosage: 10UNITS, PRN
     Route: 030
     Dates: start: 20050222, end: 20050222

REACTIONS (2)
  - PERIORBITAL OEDEMA [None]
  - WRONG TECHNIQUE IN DRUG USAGE PROCESS [None]
